FAERS Safety Report 25430158 (Version 1)
Quarter: 2025Q2

REPORT INFORMATION
  Report Type: Spontaneous
  Country: US (occurrence: US)
  Receive Date: 20250612
  Receipt Date: 20250612
  Transmission Date: 20250717
  Serious: No
  Sender: TORRENT PHARMA INC.
  Company Number: US-TORRENT-00014352

PATIENT
  Age: 27 Year
  Sex: Male
  Weight: 87 kg

DRUGS (1)
  1. VENXXIVA [Suspect]
     Active Substance: TIOPRONIN
     Indication: Cystinuria
     Dosage: TAKES 1-300 MG TABLET AT 07:30 AND 1-300 MG TABLET AT 19:30-20:00 EVERY DAY (BID)
     Route: 048
     Dates: start: 20250518

REACTIONS (4)
  - Diarrhoea [Recovered/Resolved]
  - Headache [Not Recovered/Not Resolved]
  - Product dose omission issue [Unknown]
  - Cystinuria [Recovered/Resolved]

NARRATIVE: CASE EVENT DATE: 20250518
